FAERS Safety Report 4523975-9 (Version None)
Quarter: 2004Q4

REPORT INFORMATION
  Report Type: 
  Country: None (occurrence: None)
  Receive Date: 20041210
  Receipt Date: 20041118
  Transmission Date: 20050328
  Serious: Yes (Other)
  Sender: FDA-Public Use
  Company Number: GB-ABBOTT-04P-167-0281087-00

PATIENT

DRUGS (1)
  1. EPILIM SYRUP [Suspect]
     Indication: DRUG USE FOR UNKNOWN INDICATION
     Route: 048

REACTIONS (2)
  - CONVULSION [None]
  - MEDICATION ERROR [None]
